FAERS Safety Report 24855429 (Version 2)
Quarter: 2025Q2

REPORT INFORMATION
  Report Type: Spontaneous
  Country: FR (occurrence: FR)
  Receive Date: 20250117
  Receipt Date: 20250404
  Transmission Date: 20250716
  Serious: No
  Sender: TOLMAR
  Company Number: FR-RECORDATI-2024009761

PATIENT
  Sex: Female

DRUGS (2)
  1. ELIGARD [Suspect]
     Active Substance: LEUPROLIDE ACETATE
     Indication: Occupational exposure to product
     Dates: start: 20241209
  2. ELIGARD [Suspect]
     Active Substance: LEUPROLIDE ACETATE

REACTIONS (5)
  - Occupational exposure to product [Unknown]
  - Intercepted product preparation error [Unknown]
  - Device leakage [Unknown]
  - Product physical consistency issue [Unknown]
  - Product storage error [Recovered/Resolved]

NARRATIVE: CASE EVENT DATE: 20241209
